FAERS Safety Report 9907690 (Version 1)
Quarter: 2014Q1

REPORT INFORMATION
  Report Type: Spontaneous
  Country: US (occurrence: US)
  Receive Date: 20140219
  Receipt Date: 20140219
  Transmission Date: 20141002
  Serious: No
  Sender: FDA-Public Use
  Company Number: US-BIOGENIDEC-2014BI015008

PATIENT
  Sex: Female

DRUGS (2)
  1. TYSABRI [Suspect]
     Indication: MULTIPLE SCLEROSIS
     Route: 042
     Dates: start: 20140124
  2. AMPYRA [Concomitant]
     Indication: MULTIPLE SCLEROSIS

REACTIONS (5)
  - Asthenia [Unknown]
  - Paraesthesia [Unknown]
  - Feeling abnormal [Unknown]
  - Malaise [Unknown]
  - Viral infection [Unknown]
